FAERS Safety Report 5104292-5 (Version None)
Quarter: 2006Q3

REPORT INFORMATION
  Report Type: 
  Country: None (occurrence: None)
  Receive Date: 20060912
  Receipt Date: 20060912
  Transmission Date: 20061208
  Serious: Yes (Death)
  Sender: FDA-Public Use
  Company Number: None

PATIENT
  Sex: Male
  Weight: 67.1324 kg

DRUGS (5)
  1. DOCETAXEL [Suspect]
     Indication: SARCOMA
     Dosage: 90 MG   EVERY OTHER WEEK   IV DRIP
     Route: 041
     Dates: start: 20060309, end: 20060824
  2. GEMCITABINE [Suspect]
     Indication: SARCOMA
     Dosage: 1800 MG   EVERY OTHER WEEK   IV DRIP
     Route: 041
     Dates: start: 20060309, end: 20060824
  3. AVASTIN [Suspect]
     Indication: SARCOMA
     Dosage: 350 MG   EVERY OTHER WEEK   IV DRIP
     Route: 041
     Dates: start: 20060309, end: 20060824
  4. ZOFRAN [Concomitant]
  5. DECADRON [Concomitant]

REACTIONS (1)
  - MOUTH HAEMORRHAGE [None]
